FAERS Safety Report 5104600-5 (Version None)
Quarter: 2006Q3

REPORT INFORMATION
  Report Type: 
  Country: None (occurrence: None)
  Receive Date: 20060914
  Receipt Date: 20060321
  Transmission Date: 20061208
  Serious: No
  Sender: FDA-Public Use
  Company Number: US-BRISTOL-MYERS SQUIBB COMPANY-13322086

PATIENT
  Age: 30 Year
  Sex: Female

DRUGS (3)
  1. BUSPAR [Suspect]
     Route: 048
  2. LUVOX [Concomitant]
  3. TRAZODONE HCL [Concomitant]

REACTIONS (1)
  - TIC [None]
